FAERS Safety Report 8874066 (Version 2)
Quarter: 2013Q1

REPORT INFORMATION
  Report Type: Spontaneous
  Country: US (occurrence: US)
  Receive Date: 20121029
  Receipt Date: 20130114
  Transmission Date: 20140127
  Serious: No
  Sender: FDA-Public Use
  Company Number: US-009507513-1210USA001598

PATIENT
  Age: 14 None
  Sex: Female
  Weight: 59.41 kg

DRUGS (5)
  1. NEXPLANON [Suspect]
     Indication: CONTRACEPTION
     Dosage: 1 DF, UNK
     Route: 059
     Dates: start: 20120827, end: 20121015
  2. NEXPLANON [Suspect]
     Dosage: UNK
     Dates: start: 20121015
  3. DEPAKOTE [Concomitant]
  4. RITALIN [Concomitant]
  5. PROVENTIL [Concomitant]
     Dosage: UNK
     Route: 055

REACTIONS (2)
  - Application site pain [Recovered/Resolved]
  - Device dislocation [Recovered/Resolved]
